FAERS Safety Report 5915109-0 (Version None)
Quarter: 2008Q4

REPORT INFORMATION
  Report Type: 
  Country: None (occurrence: None)
  Receive Date: 20081010
  Receipt Date: 20081001
  Transmission Date: 20090506
  Serious: Yes (Death, Life-Threatening)
  Sender: FDA-Public Use
  Company Number: B0539588B

PATIENT
  Age: 1 Day
  Sex: Female
  Weight: 2.8 kg

DRUGS (2)
  1. COMBIVIR [Suspect]
     Indication: HIV INFECTION
     Dates: start: 20071106, end: 20080719
  2. KALETRA [Suspect]
     Indication: HIV INFECTION
     Dates: start: 20071106, end: 20080719

REACTIONS (2)
  - DRUG EXPOSURE DURING PREGNANCY [None]
  - METABOLIC ACIDOSIS [None]
